FAERS Safety Report 16961128 (Version 2)
Quarter: 2019Q4

REPORT INFORMATION
  Report Type: Spontaneous
  Country: CH (occurrence: CH)
  Receive Date: 20191025
  Receipt Date: 20191227
  Transmission Date: 20200122
  Serious: Yes (Other)
  Sender: FDA-Public Use
  Company Number: CH-TEVA-2019-CH-1126831

PATIENT
  Sex: Female

DRUGS (2)
  1. OXALIPLATIN. [Suspect]
     Active Substance: OXALIPLATIN
     Indication: CHEMOTHERAPY
     Route: 065
     Dates: start: 20190522, end: 20190903
  2. CAPECITABIN [Suspect]
     Active Substance: CAPECITABINE
     Indication: INTESTINAL ADENOCARCINOMA
     Dosage: 8 CYCLES OF CHEMOTHERAPY
     Route: 065
     Dates: start: 20180527, end: 20181103

REACTIONS (4)
  - Disease progression [Unknown]
  - Ascites [Unknown]
  - Metastases to the mediastinum [Unknown]
  - Malignant peritoneal neoplasm [Unknown]
